FAERS Safety Report 12130931 (Version 2)
Quarter: 2016Q1

REPORT INFORMATION
  Report Type: Spontaneous
  Country: US (occurrence: US)
  Receive Date: 20160301
  Receipt Date: 20160318
  Transmission Date: 20160526
  Serious: No
  Sender: FDA-Public Use
  Company Number: US-PFIZER INC-2016088042

PATIENT
  Age: 69 Year
  Sex: Female
  Weight: 52.15 kg

DRUGS (2)
  1. DILANTIN [Suspect]
     Active Substance: PHENYTOIN
     Dosage: 100 MG, 1X/DAY
  2. DILANTIN-125 [Suspect]
     Active Substance: PHENYTOIN
     Dosage: UNK

REACTIONS (4)
  - Drug ineffective [Unknown]
  - Pharyngeal oedema [Unknown]
  - Product quality issue [Unknown]
  - Breast mass [Unknown]
